FAERS Safety Report 26026844 (Version 1)
Quarter: 2025Q4

REPORT INFORMATION
  Report Type: Spontaneous
  Country: EU (occurrence: EU)
  Receive Date: 20251111
  Receipt Date: 20251111
  Transmission Date: 20260117
  Serious: Yes (Other)
  Sender: BAYER HEALTHCARE PHARMACEUTICALS INC.
  Company Number: EU-BAYER-2025A147450

PATIENT
  Age: 53 Year
  Sex: Female

DRUGS (2)
  1. NEXAVAR [Suspect]
     Active Substance: SORAFENIB
     Indication: Clear cell renal cell carcinoma
     Dosage: UNK
  2. NEXAVAR [Suspect]
     Active Substance: SORAFENIB
     Indication: Metastases to bone

REACTIONS (5)
  - Metastases to spine [None]
  - Metastases to skin [None]
  - Metastases to adrenals [None]
  - Metastases to lung [None]
  - Metastases to muscle [None]
